FAERS Safety Report 22229542 (Version 1)
Quarter: 2023Q2

REPORT INFORMATION
  Report Type: Spontaneous
  Country: US (occurrence: US)
  Receive Date: 20230419
  Receipt Date: 20230419
  Transmission Date: 20230722
  Serious: No
  Sender: FDA-Public Use
  Company Number: US-ALLERGAN-2235100US

PATIENT
  Sex: Female

DRUGS (2)
  1. RESTASIS [Suspect]
     Active Substance: CYCLOSPORINE
     Indication: Dry eye
     Dosage: UNK
     Route: 047
  2. MYRBETRIQ [Suspect]
     Active Substance: MIRABEGRON
     Indication: Bladder disorder

REACTIONS (1)
  - Vision blurred [Unknown]
